FAERS Safety Report 20232387 (Version 1)
Quarter: 2021Q4

REPORT INFORMATION
  Report Type: Spontaneous
  Country: US (occurrence: None)
  Receive Date: 20211224
  Receipt Date: 20211224
  Transmission Date: 20220303
  Serious: Yes (Other)
  Sender: FDA-Public Use
  Company Number: None

PATIENT
  Age: 74 Year
  Sex: Female
  Weight: 117.93 kg

DRUGS (18)
  1. LEXISCAN [Suspect]
     Active Substance: REGADENOSON
  2. C-pap machine; [Concomitant]
  3. LEVOTHYROXINE [Concomitant]
     Active Substance: LEVOTHYROXINE
  4. LOSARTAN [Concomitant]
     Active Substance: LOSARTAN
  5. METFORMIN [Concomitant]
     Active Substance: METFORMIN HYDROCHLORIDE
  6. AMLODIPINE BESYLATE [Concomitant]
     Active Substance: AMLODIPINE BESYLATE
  7. EZETIMIBE [Concomitant]
     Active Substance: EZETIMIBE
  8. TIZANIDINE [Concomitant]
     Active Substance: TIZANIDINE
  9. VITAMIN C [Concomitant]
     Active Substance: ASCORBIC ACID
  10. VITAMIN D NOS [Concomitant]
     Active Substance: VITAMIN D NOS
  11. VITAMIN E [Concomitant]
     Active Substance: .ALPHA.-TOCOPHEROL
  12. CALCIUM [Concomitant]
     Active Substance: CALCIUM
  13. MAGNESIUM [Concomitant]
     Active Substance: MAGNESIUM
  14. ZINC [Concomitant]
     Active Substance: ZINC
  15. IRON [Concomitant]
     Active Substance: IRON
  16. FOLATE SODIUM [Concomitant]
     Active Substance: FOLATE SODIUM
  17. Vit b-12 [Concomitant]
  18. VITAMIN B COMPLEX [Concomitant]
     Active Substance: CYANOCOBALAMIN\DEXPANTHENOL\NIACINAMIDE\PYRIDOXINE HYDROCHLORIDE\RIBOFLAVIN 5^-PHOSPHATE SODIUM\THIA

REACTIONS (3)
  - Tremor [None]
  - Myocardial infarction [None]
  - Seizure [None]

NARRATIVE: CASE EVENT DATE: 20211214
